FAERS Safety Report 19583157 (Version 1)
Quarter: 2021Q3

REPORT INFORMATION
  Report Type: Spontaneous
  Country: GB (occurrence: BR)
  Receive Date: 20210719
  Receipt Date: 20210719
  Transmission Date: 20211014
  Serious: Yes (Hospitalization, Other)
  Sender: FDA-Public Use
  Company Number: GB-INSUD PHARMA-2107BR00803

PATIENT

DRUGS (14)
  1. TESTOSTERONE. [Suspect]
     Active Substance: TESTOSTERONE
     Dosage: OFF CYCLE
  2. TESTOSTERONE. [Suspect]
     Active Substance: TESTOSTERONE
     Dosage: TESTOSTERONE CYPIONATE 200 MG/WEEK
     Route: 065
  3. NANDROLONE DECANOATE. [Suspect]
     Active Substance: NANDROLONE DECANOATE
     Dosage: 250 MG/WEEK
     Route: 065
  4. METHANDROSTENOLONE [Suspect]
     Active Substance: METHANDROSTENOLONE
     Dosage: OFF CYCLE
  5. NANDROLONE [Suspect]
     Active Substance: NANDROLONE
     Indication: PRODUCT USED FOR UNKNOWN INDICATION
     Dosage: 50 MILLIGRAM INJECTION EVERY OTHER DAY FOR 14 DAYS
     Route: 030
  6. METHANDROSTENOLONE [Suspect]
     Active Substance: METHANDROSTENOLONE
     Dosage: 25 MG/DAY
     Route: 065
  7. CLONAZEPAM. [Concomitant]
     Active Substance: CLONAZEPAM
     Indication: PRODUCT USED FOR UNKNOWN INDICATION
     Dosage: 20 MILLIGRAM
  8. TESTOSTERONE. [Suspect]
     Active Substance: TESTOSTERONE
     Dosage: TESTOSTERONE CYPIONATE 200 MG/WEEK
     Route: 065
  9. NANDROLONE DECANOATE. [Suspect]
     Active Substance: NANDROLONE DECANOATE
     Dosage: OFF CYCLE
  10. METHANDROSTENOLONE [Suspect]
     Active Substance: METHANDROSTENOLONE
     Dosage: 25 MG/DAY
     Route: 065
  11. NANDROLONE DECANOATE. [Suspect]
     Active Substance: NANDROLONE DECANOATE
     Indication: PRODUCT USED FOR UNKNOWN INDICATION
     Dosage: 300 MG/WEEK
  12. TESTOSTERONE. [Suspect]
     Active Substance: TESTOSTERONE
     Indication: PRODUCT USED FOR UNKNOWN INDICATION
     Dosage: 14?DAY CYCLE OF DURATESTON INJECTION EVERY OTHER DAY
     Route: 030
  13. METHANDROSTENOLONE [Suspect]
     Active Substance: METHANDROSTENOLONE
     Indication: PRODUCT USED FOR UNKNOWN INDICATION
     Dosage: 40 MG/DAY
  14. NANDROLONE DECANOATE. [Suspect]
     Active Substance: NANDROLONE DECANOATE
     Dosage: 250 MG/WEEK
     Route: 065

REACTIONS (11)
  - Hormone level abnormal [Recovered/Resolved]
  - Suicide attempt [Recovered/Resolved]
  - Steroid withdrawal syndrome [Recovered/Resolved]
  - Amnestic disorder [Recovered/Resolved]
  - Drug abuse [Recovered/Resolved]
  - Mood swings [Recovered/Resolved]
  - Homicidal ideation [Recovered/Resolved]
  - Loss of consciousness [Recovered/Resolved]
  - Depressed mood [Recovered/Resolved]
  - Anxiety [Recovered/Resolved]
  - Aggression [Recovered/Resolved]
